FAERS Safety Report 19482139 (Version 2)
Quarter: 2021Q3

REPORT INFORMATION
  Report Type: Spontaneous
  Country: US (occurrence: US)
  Receive Date: 20210701
  Receipt Date: 20210701
  Transmission Date: 20211014
  Serious: Yes (Hospitalization, Other)
  Sender: FDA-Public Use
  Company Number: US-CELGENEUS-USA-20210607297

PATIENT
  Sex: Male
  Weight: 68.1 kg

DRUGS (3)
  1. VELCADE [Concomitant]
     Active Substance: BORTEZOMIB
     Indication: PLASMA CELL MYELOMA
     Route: 065
  2. REVLIMID [Suspect]
     Active Substance: LENALIDOMIDE
     Indication: PLASMA CELL MYELOMA
     Route: 048
     Dates: start: 201907
  3. DARATUMUMAB [Concomitant]
     Active Substance: DARATUMUMAB
     Indication: PLASMA CELL MYELOMA
     Route: 065
     Dates: start: 201911, end: 202106

REACTIONS (7)
  - Gait inability [Recovering/Resolving]
  - Aphonia [Unknown]
  - Blood count abnormal [Recovering/Resolving]
  - Neuropathy peripheral [Not Recovered/Not Resolved]
  - Weight decreased [Unknown]
  - Blood pressure measurement [Recovering/Resolving]
  - Loss of consciousness [Recovered/Resolved]
